FAERS Safety Report 7978663 (Version 2)
Quarter: 2012Q4

REPORT INFORMATION
  Report Type: 
  Country: US (occurrence: US)
  Receive Date: 20110607
  Receipt Date: 20121128
  Transmission Date: 20130627
  Serious: Yes (Hospitalization)
  Sender: FDA-Public Use
  Company Number: US-ACTELION-A-NJ2011-49428

PATIENT
  Age: 63 Year
  Sex: Female
  Weight: 122.45 kg

DRUGS (12)
  1. TRACLEER [Suspect]
     Indication: PULMONARY ARTERIAL HYPERTENSION
     Dosage: 125 mg, bid
     Route: 048
     Dates: start: 2004
  2. COUMADIN [Concomitant]
  3. DIOVAN [Concomitant]
  4. ALLOPURINOL [Concomitant]
  5. ATENOLOL [Concomitant]
  6. PROZAC [Concomitant]
  7. NAPROXEN [Concomitant]
  8. SYNTHROID [Concomitant]
  9. PROTONIX [Concomitant]
  10. PERCOCET [Concomitant]
  11. PRANDIN [Concomitant]
  12. JANUVIA [Concomitant]

REACTIONS (3)
  - Hernia repair [Unknown]
  - Post procedural infection [Unknown]
  - Diabetes mellitus [Unknown]
